FAERS Safety Report 7148825-6 (Version None)
Quarter: 2010Q4

REPORT INFORMATION
  Report Type: 
  Country: None (occurrence: None)
  Receive Date: 20101209
  Receipt Date: 20101130
  Transmission Date: 20110411
  Serious: Yes (Other)
  Sender: FDA-Public Use
  Company Number: PHHY2010FR82160

PATIENT
  Age: 40 Year
  Sex: Female

DRUGS (3)
  1. TEGRETOL [Suspect]
     Indication: AFFECTIVE DISORDER
     Dosage: 400 MG, TID
  2. TEGRETOL [Suspect]
     Dosage: 400 MG, BID
  3. RISPERDAL [Concomitant]

REACTIONS (4)
  - BLOOD CREATININE INCREASED [None]
  - RENAL ARTERY STENOSIS [None]
  - URINARY INCONTINENCE [None]
  - URINARY RETENTION [None]
